FAERS Safety Report 9324396 (Version 1)
Quarter: 2013Q2

REPORT INFORMATION
  Report Type: Spontaneous
  Country: US (occurrence: US)
  Receive Date: 20130603
  Receipt Date: 20130603
  Transmission Date: 20140414
  Serious: Yes (Hospitalization)
  Sender: FDA-Public Use
  Company Number: US-BAYER-2013-064497

PATIENT
  Age: 60 Year
  Sex: Female

DRUGS (10)
  1. BAYER GENUINE ASPIRIN ORIGINAL STRENGTH [Suspect]
  2. AMBRISENTAN [Suspect]
     Indication: PULMONARY ARTERIAL HYPERTENSION
     Dosage: 10 MG, QD
     Route: 065
     Dates: start: 20081231
  3. BUMETANIDE [Suspect]
     Dosage: UNK
  4. QUINAPRIL [Suspect]
  5. LOVASTATIN [Suspect]
  6. PIOGLITAZONE [Concomitant]
  7. OXYBUTYNIN [Concomitant]
  8. CYANOCOBALAMIN [Concomitant]
  9. ALLOPURINOL [Concomitant]
  10. SERTRALINE [Concomitant]

REACTIONS (2)
  - Oedema [None]
  - Dyspnoea [None]
